FAERS Safety Report 9223703 (Version 1)
Quarter: 2013Q2

REPORT INFORMATION
  Report Type: Spontaneous
  Country: US (occurrence: US)
  Receive Date: 20130410
  Receipt Date: 20130410
  Transmission Date: 20140414
  Serious: Yes (Other)
  Sender: FDA-Public Use
  Company Number: CHPA2013US005783

PATIENT
  Age: 66 Year
  Sex: Male

DRUGS (1)
  1. MAALOX ANTACID TABLETS - UNKNOWN [Suspect]
     Indication: ULCER
     Dosage: 2 DF, BID
     Route: 048

REACTIONS (4)
  - Myocardial infarction [Recovered/Resolved]
  - Gastrooesophageal reflux disease [Not Recovered/Not Resolved]
  - Stress [Unknown]
  - Off label use [Unknown]
